FAERS Safety Report 10444272 (Version 4)
Quarter: 2015Q2

REPORT INFORMATION
  Report Type: Report from Study
  Country: JP (occurrence: JP)
  Receive Date: 20140910
  Receipt Date: 20150504
  Transmission Date: 20150821
  Serious: Yes (Death, Life-Threatening, Hospitalization, Disabling, Other)
  Sender: FDA-Public Use
  Company Number: PHHY2014JP115362

PATIENT
  Age: 66 Year
  Sex: Male

DRUGS (3)
  1. GLYCYRON [Concomitant]
     Active Substance: AMMONIUM GLYCYRRHIZATE\GLYCINE\METHIONINE
     Indication: MYELODYSPLASTIC SYNDROME
     Dosage: 4 DF, UNK
     Route: 048
     Dates: start: 20110607, end: 20120604
  2. ICL670A [Suspect]
     Active Substance: DEFERASIROX
     Indication: MYELODYSPLASTIC SYNDROME
     Dosage: 500 MG, UNK
     Route: 048
     Dates: start: 20130606, end: 20140519
  3. GLYCYRON [Concomitant]
     Active Substance: AMMONIUM GLYCYRRHIZATE\GLYCINE\METHIONINE
     Dosage: 4 DF, UNK
     Route: 048
     Dates: start: 20130606, end: 20140518

REACTIONS (18)
  - Haemorrhage [Fatal]
  - Abdominal pain [Unknown]
  - Alanine aminotransferase increased [Unknown]
  - Hepatic failure [Fatal]
  - Peritonitis bacterial [Fatal]
  - Blood albumin increased [Unknown]
  - Aspartate aminotransferase increased [Unknown]
  - Gamma-glutamyltransferase increased [Unknown]
  - Serum ferritin increased [Unknown]
  - Platelet count decreased [Not Recovered/Not Resolved]
  - Haemoglobin decreased [Unknown]
  - Haematemesis [Recovered/Resolved]
  - White blood cell count increased [Unknown]
  - Blood alkaline phosphatase increased [Unknown]
  - Haematocrit decreased [Unknown]
  - Red blood cell count decreased [Unknown]
  - Hepatic cirrhosis [Not Recovered/Not Resolved]
  - Varices oesophageal [Not Recovered/Not Resolved]

NARRATIVE: CASE EVENT DATE: 20130814
